FAERS Safety Report 21307396 (Version 1)
Quarter: 2022Q3

REPORT INFORMATION
  Report Type: Spontaneous
  Country: US (occurrence: US)
  Receive Date: 20220908
  Receipt Date: 20220908
  Transmission Date: 20221027
  Serious: Yes (Other)
  Sender: FDA-Public Use
  Company Number: US-BAYER-2022P013418

PATIENT
  Age: 32 Year
  Sex: Male

DRUGS (4)
  1. ASPIRIN [Suspect]
     Active Substance: ASPIRIN
  2. HEPARIN [Suspect]
     Active Substance: HEPARIN SODIUM
  3. APIXABAN [Concomitant]
     Active Substance: APIXABAN
     Indication: Cardiac ventricular thrombosis
  4. SILDENAFIL [Concomitant]
     Active Substance: SILDENAFIL

REACTIONS (4)
  - Haemorrhagic stroke [None]
  - Labelled drug-drug interaction medication error [None]
  - Holt-Oram syndrome [None]
  - Phlebotomy [None]
